FAERS Safety Report 16669138 (Version 1)
Quarter: 2019Q3

REPORT INFORMATION
  Report Type: Spontaneous
  Country: JP (occurrence: JP)
  Receive Date: 20190805
  Receipt Date: 20190805
  Transmission Date: 20191004
  Serious: Yes (Death, Other)
  Sender: FDA-Public Use
  Company Number: JP-ELI_LILLY_AND_COMPANY-JP201907016476

PATIENT
  Age: 90 Year

DRUGS (4)
  1. EDIROL [Concomitant]
     Active Substance: ELDECALCITOL
  2. BAYASPIRIN [Concomitant]
     Active Substance: ASPIRIN
  3. AMLODIPINE [Concomitant]
     Active Substance: AMLODIPINE BESYLATE
  4. FORTEO [Suspect]
     Active Substance: TERIPARATIDE
     Indication: PRODUCT USED FOR UNKNOWN INDICATION
     Dosage: UNK
     Route: 058
     Dates: start: 20190604

REACTIONS (3)
  - Femur fracture [Not Recovered/Not Resolved]
  - Fall [Unknown]
  - Pneumonia [Fatal]
